FAERS Safety Report 7237672-2 (Version None)
Quarter: 2011Q1

REPORT INFORMATION
  Report Type: 
  Country: None (occurrence: None)
  Receive Date: 20110121
  Receipt Date: 20110119
  Transmission Date: 20110831
  Serious: Yes (Hospitalization)
  Sender: FDA-Public Use
  Company Number: US-B.I. PHARMACEUTICALS,INC./RIDGEFIELD-2011-BP-01177BP

PATIENT
  Sex: Male

DRUGS (5)
  1. ASPIRIN [Concomitant]
     Dosage: 81 MG
     Route: 048
  2. LISINOPRIL [Concomitant]
     Indication: HYPERTENSION
     Dosage: 10 MG
     Route: 048
  3. PRADAXA [Suspect]
     Indication: ATRIAL FIBRILLATION
     Dosage: 300 MG
     Route: 048
     Dates: start: 20110114, end: 20110116
  4. CRESTOR [Concomitant]
     Indication: BLOOD CHOLESTEROL INCREASED
     Dosage: 10 MG
     Route: 048
  5. METOPROLOL TARTRATE [Concomitant]
     Indication: HYPERTENSION
     Dosage: 25 MG
     Route: 048

REACTIONS (2)
  - ABDOMINAL DISCOMFORT [None]
  - RECTAL HAEMORRHAGE [None]
